FAERS Safety Report 5704599-4 (Version None)
Quarter: 2008Q2

REPORT INFORMATION
  Report Type: 
  Country: None (occurrence: None)
  Receive Date: 20080414
  Receipt Date: 20080409
  Transmission Date: 20081010
  Serious: Yes (Hospitalization)
  Sender: FDA-Public Use
  Company Number: ES-BRISTOL-MYERS SQUIBB COMPANY-14131924

PATIENT
  Age: 65 Year
  Sex: Female

DRUGS (4)
  1. ABATACEPT [Suspect]
     Indication: RHEUMATOID ARTHRITIS
     Dosage: INTERRUPTED ON 29 JAN 2008
     Route: 042
     Dates: start: 20060615
  2. LEFLUNOMIDE [Concomitant]
     Dates: start: 20060508
  3. NPH ILETIN II [Concomitant]
     Dosage: 1 DOSAGE FORM = 100 UNITS NOT SPECIFIED
     Dates: start: 19960101
  4. METFORMINE CHLORHYDRATE [Concomitant]
     Dates: start: 20000101

REACTIONS (2)
  - CITROBACTER INFECTION [None]
  - WOUND INFECTION STAPHYLOCOCCAL [None]
